FAERS Safety Report 13974891 (Version 6)
Quarter: 2018Q2

REPORT INFORMATION
  Report Type: Spontaneous
  Country: US (occurrence: US)
  Receive Date: 20170914
  Receipt Date: 20180511
  Transmission Date: 20180711
  Serious: Yes (Other)
  Sender: FDA-Public Use
  Company Number: US-ASTELLAS-2017US032462

PATIENT
  Age: 80 Year
  Sex: Male

DRUGS (1)
  1. XTANDI [Suspect]
     Active Substance: ENZALUTAMIDE
     Indication: PROSTATE CANCER
     Route: 048
     Dates: start: 20170721

REACTIONS (11)
  - Joint swelling [Recovered/Resolved]
  - Fluid retention [Unknown]
  - Joint noise [Recovered/Resolved]
  - Weight increased [Unknown]
  - Limb discomfort [Recovered/Resolved]
  - Pancreatic neoplasm [Unknown]
  - Arthralgia [Recovered/Resolved]
  - Fall [Unknown]
  - Constipation [Recovered/Resolved]
  - Fatigue [Unknown]
  - Asthenia [Unknown]

NARRATIVE: CASE EVENT DATE: 20170807
